FAERS Safety Report 8805477 (Version 2)
Quarter: 2012Q4

REPORT INFORMATION
  Report Type: 
  Country: NL (occurrence: NL)
  Receive Date: 20120924
  Receipt Date: 20121018
  Transmission Date: 20130627
  Serious: Yes (Hospitalization, Other)
  Sender: FDA-Public Use
  Company Number: NL-MYLANLABS-2012S1018946

PATIENT
  Age: 54 Year
  Sex: Female

DRUGS (3)
  1. LOSARTAN [Suspect]
     Indication: HYPERTENSION
     Dosage: 1dd 50 mg
     Route: 048
     Dates: start: 20000103, end: 20120906
  2. MIRTAZAPINE [Suspect]
     Indication: DEPRESSION
     Dosage: 1dd 15 mg
     Route: 048
     Dates: start: 20120301, end: 20120906
  3. TRIAMTERENE + HYDROCHLOROTHIAZIDE [Concomitant]
     Indication: PRODUCT USED FOR UNKNOWN INDICATION
     Dosage: 1dd 50/25 mg
     Route: 048
     Dates: start: 20021101

REACTIONS (2)
  - Rhabdomyolysis [Recovering/Resolving]
  - Polymyositis [Recovering/Resolving]
